FAERS Safety Report 21729634 (Version 1)
Quarter: 2022Q4

REPORT INFORMATION
  Report Type: Spontaneous
  Country: US (occurrence: None)
  Receive Date: 20221214
  Receipt Date: 20221214
  Transmission Date: 20230113
  Serious: Yes (Hospitalization)
  Sender: FDA-Public Use
  Company Number: None

PATIENT
  Age: 53 Year
  Sex: Female
  Weight: 70.3 kg

DRUGS (5)
  1. VANCOMYCIN [Suspect]
     Active Substance: VANCOMYCIN
     Indication: Aortic aneurysm
     Dosage: 1 GRAM TWICE A DAY INTRAVENOUS
     Route: 042
     Dates: start: 20221019, end: 20221108
  2. VANCOMYCIN [Suspect]
     Active Substance: VANCOMYCIN
     Indication: Infective aneurysm
  3. CEFTRIAXONE [Suspect]
     Active Substance: CEFTRIAXONE
     Indication: Aortic aneurysm
     Dosage: 2 GRAMS DAILY INTRAVENOUS?
     Route: 042
     Dates: start: 20221019, end: 20221107
  4. CEFTRIAXONE [Suspect]
     Active Substance: CEFTRIAXONE
     Indication: Infective aneurysm
  5. TIGECYCLINE [Suspect]
     Active Substance: TIGECYCLINE

REACTIONS (10)
  - Pyrexia [None]
  - Diarrhoea [None]
  - Vomiting [None]
  - Pain [None]
  - Arthralgia [None]
  - Chills [None]
  - Hyperhidrosis [None]
  - Malaise [None]
  - Infection [None]
  - Refusal of treatment by patient [None]

NARRATIVE: CASE EVENT DATE: 20221107
